FAERS Safety Report 4291040-4 (Version None)
Quarter: 2004Q1

REPORT INFORMATION
  Report Type: 
  Country: None (occurrence: None)
  Receive Date: 20040209
  Receipt Date: 20040128
  Transmission Date: 20041129
  Serious: Yes (Hospitalization)
  Sender: FDA-Public Use
  Company Number: BE-JNJFOC-20031005166

PATIENT
  Age: 76 Year
  Sex: Female

DRUGS (1)
  1. REMICADE [Suspect]
     Indication: RHEUMATOID ARTHRITIS
     Dosage: 3 MG/KG, 1 IN 1 DAY, INTRAVENOUS
     Route: 042

REACTIONS (4)
  - CATHETER SEPSIS [None]
  - FEMUR FRACTURE [None]
  - POST PROCEDURAL COMPLICATION [None]
  - VAGINAL HAEMORRHAGE [None]
